FAERS Safety Report 4604559-0 (Version None)
Quarter: 2005Q2

REPORT INFORMATION
  Report Type: 
  Country: None (occurrence: None)
  Receive Date: 20050223
  Receipt Date: 20041123
  Transmission Date: 20051028
  Serious: No
  Sender: FDA-Public Use
  Company Number: PHEH2004US12721

PATIENT
  Age: 50 Year
  Sex: Female

DRUGS (2)
  1. ZELNORM [Suspect]
     Dosage: 1/2 TABLET 6 MG QD, ORAL
     Route: 048
     Dates: start: 20040920, end: 20041112
  2. AMBIEN [Concomitant]

REACTIONS (5)
  - CHEST DISCOMFORT [None]
  - DYSPNOEA [None]
  - INFLUENZA LIKE ILLNESS [None]
  - PANIC REACTION [None]
  - VIRAL INFECTION [None]
